FAERS Safety Report 4923300-5 (Version None)
Quarter: 2006Q1

REPORT INFORMATION
  Report Type: 
  Country: None (occurrence: None)
  Receive Date: 20060223
  Receipt Date: 20060223
  Transmission Date: 20060701
  Serious: Yes (Disabling)
  Sender: FDA-Public Use
  Company Number: None

PATIENT
  Age: 15 Year
  Sex: Male
  Weight: 64.8644 kg

DRUGS (1)
  1. AMNESTEEM [Suspect]
     Indication: ACNE
     Dosage: ONE  2X DAY PO
     Route: 048
     Dates: start: 20051101, end: 20060201

REACTIONS (5)
  - DEPRESSION [None]
  - EDUCATIONAL PROBLEM [None]
  - FEELING ABNORMAL [None]
  - MOOD SWINGS [None]
  - SOCIAL PROBLEM [None]
